FAERS Safety Report 10174968 (Version 1)
Quarter: 2014Q2

REPORT INFORMATION
  Report Type: Spontaneous
  Country: JP (occurrence: JP)
  Receive Date: 20140515
  Receipt Date: 20140515
  Transmission Date: 20141212
  Serious: Yes (Other)
  Sender: FDA-Public Use
  Company Number: JP-PFIZER INC-2014131067

PATIENT
  Age: 4 Decade
  Sex: Female

DRUGS (1)
  1. INTAL [Suspect]
     Dosage: UNK
     Route: 055

REACTIONS (1)
  - Asthma [Unknown]
